FAERS Safety Report 24135909 (Version 1)
Quarter: 2024Q3

REPORT INFORMATION
  Report Type: Other
  Country: IT (occurrence: IT)
  Receive Date: 20240725
  Receipt Date: 20240725
  Transmission Date: 20241017
  Serious: Yes (Life-Threatening)
  Sender: B BRAUN
  Company Number: IT-B.Braun Medical Inc.-2159559

PATIENT
  Age: 57 Year
  Sex: Male

DRUGS (4)
  1. DEXTROSE\LIDOCAINE HYDROCHLORIDE [Suspect]
     Active Substance: DEXTROSE\LIDOCAINE HYDROCHLORIDE
     Indication: Ventricular arrhythmia
     Route: 042
  2. POTASSIUM [Suspect]
     Active Substance: POTASSIUM
  3. AMIODARONE [Suspect]
     Active Substance: AMIODARONE
  4. MAGNESIUM [Suspect]
     Active Substance: MAGNESIUM

REACTIONS (1)
  - Drug ineffective [Unknown]
